FAERS Safety Report 24787329 (Version 1)
Quarter: 2024Q4

REPORT INFORMATION
  Report Type: Report from Study
  Country: US (occurrence: US)
  Receive Date: 20241230
  Receipt Date: 20241230
  Transmission Date: 20250114
  Serious: Yes (Other)
  Sender: TAKEDA
  Company Number: US-TAKEDA-2024TUS094193

PATIENT
  Sex: Female

DRUGS (3)
  1. VEDOLIZUMAB [Suspect]
     Active Substance: VEDOLIZUMAB
     Indication: Crohn^s disease
     Dosage: 108 MILLIGRAM, Q2WEEKS
     Dates: start: 20240921
  2. VEDOLIZUMAB [Suspect]
     Active Substance: VEDOLIZUMAB
  3. DOXYCYCLINE HYDROCHLORIDE [Concomitant]
     Active Substance: DOXYCYCLINE HYDROCHLORIDE
     Dosage: 100 MILLIGRAM

REACTIONS (7)
  - Crohn^s disease [Not Recovered/Not Resolved]
  - Impaired quality of life [Not Recovered/Not Resolved]
  - Drug ineffective [Unknown]
  - Weight abnormal [Not Recovered/Not Resolved]
  - Weight increased [Not Recovered/Not Resolved]
  - Arthralgia [Not Recovered/Not Resolved]
  - Fatigue [Not Recovered/Not Resolved]
